FAERS Safety Report 9694612 (Version 3)
Quarter: 2013Q4

REPORT INFORMATION
  Report Type: Spontaneous
  Country: NL (occurrence: NL)
  Receive Date: 20131118
  Receipt Date: 20131210
  Transmission Date: 20140711
  Serious: Yes (Hospitalization)
  Sender: FDA-Public Use
  Company Number: NL-MERCK-1304NLD006442

PATIENT
  Age: 59 Year
  Sex: Male

DRUGS (13)
  1. PEGINTRON [Suspect]
     Indication: HEPATITIS C
     Dosage: STRENGTH: 100MCG/0.5 ML, WEEKLY
     Route: 058
     Dates: start: 20130402, end: 20131206
  2. REBETOL [Suspect]
     Indication: HEPATITIS C
     Dosage: 200 MG, MORNING 2 CAPSULES, EVENING 3 CAPSULES
     Route: 048
     Dates: start: 20130402, end: 20131206
  3. VICTRELIS [Suspect]
     Indication: HEPATITIS C
     Dosage: 600 MG, QID
     Route: 048
     Dates: start: 20130430, end: 20131206
  4. MORPHINE [Concomitant]
     Dosage: 160 MG, BID
  5. TEMAZEPAM [Concomitant]
     Dosage: 40 MG, QD
  6. FUROSEMIDE [Concomitant]
     Dosage: 40 MG, BID
  7. POLARAMINE (ACETAMINOPHEN (+) CHLORPHENIRAMINE MALEATE) [Concomitant]
     Dosage: 12 MG, DEVIDED OVER THE DAY
  8. SPIRONOLACTONE [Concomitant]
     Dosage: 100 MG, QD
  9. PROPANOL [Concomitant]
     Dosage: 80 MG, QD
  10. MELATONIN [Concomitant]
  11. VITAMINS (UNSPECIFIED) [Concomitant]
  12. THIAMINE [Concomitant]
     Dosage: 100 MG, QD
  13. DIAZEPAM [Concomitant]
     Dosage: 30 MG, QPM

REACTIONS (14)
  - Syncope [Not Recovered/Not Resolved]
  - Post procedural complication [Not Recovered/Not Resolved]
  - Dysgeusia [Not Recovered/Not Resolved]
  - Apathy [Not Recovered/Not Resolved]
  - Sensation of heaviness [Not Recovered/Not Resolved]
  - Decreased appetite [Not Recovered/Not Resolved]
  - Fatigue [Not Recovered/Not Resolved]
  - Listless [Not Recovered/Not Resolved]
  - Nausea [Not Recovered/Not Resolved]
  - Pyrexia [Recovered/Resolved]
  - Adverse event [Recovered/Resolved]
  - Tinnitus [Recovered/Resolved]
  - Flushing [Recovered/Resolved]
  - Insomnia [Recovered/Resolved]
